FAERS Safety Report 7988957-3 (Version None)
Quarter: 2011Q4

REPORT INFORMATION
  Report Type: 
  Country: None (occurrence: None)
  Receive Date: 20111219
  Receipt Date: 20111207
  Transmission Date: 20120403
  Serious: Yes (Other)
  Sender: FDA-Public Use
  Company Number: US-BAYER-201028655NA

PATIENT
  Age: 28 Year
  Sex: Female
  Weight: 106.58 kg

DRUGS (7)
  1. RANITIDINE [Concomitant]
  2. YASMIN [Suspect]
     Indication: PRODUCT USED FOR UNKNOWN INDICATION
     Route: 048
     Dates: start: 20061001, end: 20071101
  3. HYDROCHLORIDE [Concomitant]
  4. NSAID'S [Concomitant]
  5. NAPROXEN [Concomitant]
  6. VICODIN [Concomitant]
     Dosage: UNK UNK, PRN
     Route: 048
  7. ZANTAC [Concomitant]
     Dosage: 150 MG, BID
     Route: 048

REACTIONS (2)
  - GALLBLADDER DISORDER [None]
  - CHOLECYSTITIS CHRONIC [None]
